FAERS Safety Report 8691086 (Version 2)
Quarter: 2013Q4

REPORT INFORMATION
  Report Type: Spontaneous
  Country: US (occurrence: US)
  Receive Date: 20120730
  Receipt Date: 20131106
  Transmission Date: 20140711
  Serious: Yes (Hospitalization)
  Sender: FDA-Public Use
  Company Number: US-009507513-1207USA010624

PATIENT
  Age: 64 Year
  Sex: Male

DRUGS (7)
  1. ZOCOR [Suspect]
     Dosage: 40 MG, QD
     Route: 048
  2. ACEON [Suspect]
     Dosage: 10 MG, QD
     Route: 048
  3. TRILEPTAL [Suspect]
     Dosage: 300 MG, BID
     Route: 048
  4. LEVOTHYROX [Concomitant]
  5. TENORMINE [Concomitant]
  6. NEXIUM [Concomitant]
  7. KARDEGIC [Concomitant]

REACTIONS (3)
  - Hyponatraemia [Unknown]
  - Anuria [Unknown]
  - Rhabdomyolysis [Unknown]
